FAERS Safety Report 11374746 (Version 1)
Quarter: 2015Q3

REPORT INFORMATION
  Report Type: Spontaneous
  Country: US (occurrence: None)
  Receive Date: 20150812
  Receipt Date: 20150812
  Transmission Date: 20151125
  Serious: Yes (Disabling)
  Sender: FDA-Public Use
  Company Number: None

PATIENT
  Age: 84 Year
  Sex: Female
  Weight: 61.24 kg

DRUGS (6)
  1. ATENOLOL. [Concomitant]
     Active Substance: ATENOLOL
  2. VITAMIN B [Concomitant]
     Active Substance: VITAMIN B
  3. BUSPAR [Concomitant]
     Active Substance: BUSPIRONE HYDROCHLORIDE
  4. BABY ASPIRIN [Concomitant]
     Active Substance: ASPIRIN
  5. CALCIUM [Concomitant]
     Active Substance: CALCIUM
  6. SOTALOL-GEN. FOR HETAPACE [Suspect]
     Active Substance: SOTALOL
     Indication: ATRIAL FIBRILLATION
     Dosage: 2 DAILY
     Dates: start: 20150428

REACTIONS (1)
  - Muscular weakness [None]

NARRATIVE: CASE EVENT DATE: 20150425
